FAERS Safety Report 7380846-0 (Version None)
Quarter: 2011Q1

REPORT INFORMATION
  Report Type: 
  Country: None (occurrence: None)
  Receive Date: 20110329
  Receipt Date: 20110324
  Transmission Date: 20110831
  Serious: Yes (Hospitalization)
  Sender: FDA-Public Use
  Company Number: B0708171A

PATIENT
  Age: 34 Year
  Sex: Male

DRUGS (1)
  1. AUGMENTIN [Suspect]
     Indication: COUGH
     Dosage: 1TAB SINGLE DOSE
     Route: 048
     Dates: start: 20101007, end: 20101007

REACTIONS (5)
  - SKIN LESION [None]
  - ANAPHYLACTIC SHOCK [None]
  - PRURITUS GENERALISED [None]
  - URTICARIA [None]
  - HYPOTENSION [None]
